FAERS Safety Report 5928679-3 (Version None)
Quarter: 2008Q4

REPORT INFORMATION
  Report Type: 
  Country: None (occurrence: None)
  Receive Date: 20081023
  Receipt Date: 20081021
  Transmission Date: 20090506
  Serious: Yes (Disabling)
  Sender: FDA-Public Use
  Company Number: US-ROXANE LABORATORIES, INC.-2008-RO-00061RO

PATIENT
  Sex: Female
  Weight: 64 kg

DRUGS (11)
  1. DEXAMETHASONE [Suspect]
     Indication: INFLAMMATION
     Dosage: 12MG
     Dates: start: 20080913, end: 20080914
  2. LOVENOX [Concomitant]
  3. CLONAZEPAM [Concomitant]
  4. DIFLUCAN [Concomitant]
  5. MORPHINE SULFATE INJ [Concomitant]
     Indication: PAIN
     Dates: start: 20080910
  6. PROTONIX [Concomitant]
  7. MIRALAX [Concomitant]
  8. SENOKOT [Concomitant]
  9. MS CONTIN [Concomitant]
     Indication: PAIN
     Dosage: 180MG
     Dates: start: 20080910
  10. CYMBALTA [Concomitant]
     Dosage: 30MG
     Dates: start: 20080910, end: 20080913
  11. FIBERCON [Concomitant]
     Dates: start: 20080910

REACTIONS (2)
  - DRUG INEFFECTIVE [None]
  - PARALYSIS [None]
